FAERS Safety Report 9701988 (Version 1)
Quarter: 2013Q4

REPORT INFORMATION
  Report Type: Spontaneous
  Country: IT (occurrence: IT)
  Receive Date: 20131121
  Receipt Date: 20131121
  Transmission Date: 20140711
  Serious: Yes (Hospitalization)
  Sender: FDA-Public Use
  Company Number: IT-ROCHE-1305801

PATIENT
  Age: 83 Year
  Sex: Male

DRUGS (3)
  1. TORADOL [Suspect]
     Indication: PAIN
     Dosage: DOSE: 10 MG/ML
     Route: 030
     Dates: start: 20131002, end: 20131006
  2. COUMADIN [Suspect]
     Indication: PRODUCT USED FOR UNKNOWN INDICATION
     Route: 048
     Dates: start: 20000101, end: 20131006
  3. RAMIPRIL [Concomitant]

REACTIONS (5)
  - Haematochezia [Recovering/Resolving]
  - Dysentery [Recovering/Resolving]
  - Melaena [Recovering/Resolving]
  - Hyperpyrexia [Recovering/Resolving]
  - Abdominal pain lower [Recovering/Resolving]
